FAERS Safety Report 6854630-8 (Version None)
Quarter: 2010Q3

REPORT INFORMATION
  Report Type: 
  Country: None (occurrence: None)
  Receive Date: 20100717
  Receipt Date: 20080214
  Transmission Date: 20110219
  Serious: Yes (Other)
  Sender: FDA-Public Use
  Company Number: US-PFIZER INC-2007102068

PATIENT
  Sex: Female

DRUGS (3)
  1. CHANTIX [Suspect]
     Indication: SMOKING CESSATION THERAPY
     Route: 048
     Dates: start: 20070913
  2. ALPRAZOLAM [Concomitant]
  3. HYDROCODONE [Concomitant]
     Dosage: 10/325 MG,EVERY 6 HOURS.

REACTIONS (1)
  - SUICIDAL IDEATION [None]
